FAERS Safety Report 5115310-2 (Version None)
Quarter: 2006Q3

REPORT INFORMATION
  Report Type: 
  Country: None (occurrence: None)
  Receive Date: 20060920
  Receipt Date: 20060912
  Transmission Date: 20061208
  Serious: Yes (Other)
  Sender: FDA-Public Use
  Company Number: HQWYE584212SEP06

PATIENT
  Age: 16 Year
  Sex: Female

DRUGS (1)
  1. TRIONETTA (LEVONORGESTREL/ETHINYL ESTRADIOL/INERT, TABLET) [Suspect]

REACTIONS (2)
  - PULMONARY EMBOLISM [None]
  - PULMONARY INFARCTION [None]
